FAERS Safety Report 24787737 (Version 1)
Quarter: 2024Q4

REPORT INFORMATION
  Report Type: Spontaneous
  Country: DE (occurrence: DE)
  Receive Date: 20241230
  Receipt Date: 20241230
  Transmission Date: 20250115
  Serious: Yes (Other)
  Sender: STRIDES
  Company Number: DE-STRIDES ARCOLAB LIMITED-2024SP017129

PATIENT
  Age: 71 Year
  Sex: Female

DRUGS (1)
  1. ACETAZOLAMIDE [Suspect]
     Active Substance: ACETAZOLAMIDE
     Indication: Ocular ischaemic syndrome
     Dosage: UNK
     Route: 065

REACTIONS (2)
  - Angle closure glaucoma [Unknown]
  - Drug ineffective for unapproved indication [Unknown]
